FAERS Safety Report 23327904 (Version 2)
Quarter: 2023Q4

REPORT INFORMATION
  Report Type: Report from Study
  Country: CA (occurrence: CA)
  Receive Date: 20231221
  Receipt Date: 20231225
  Transmission Date: 20240109
  Serious: Yes (Death, Hospitalization, Other)
  Sender: FDA-Public Use
  Company Number: CA-ABBVIE-5552524

PATIENT
  Age: 66 Year
  Sex: Male

DRUGS (2)
  1. VENCLEXTA [Suspect]
     Active Substance: VENETOCLAX
     Indication: Acute myeloid leukaemia
     Dosage: LAST ADMIN DATE: 2023
     Route: 048
     Dates: start: 20231120
  2. AZACITIDINE [Suspect]
     Active Substance: AZACITIDINE
     Indication: Acute myeloid leukaemia
     Route: 065

REACTIONS (8)
  - Respiratory failure [Fatal]
  - Nausea [Not Recovered/Not Resolved]
  - Pyrexia [Fatal]
  - Sepsis [Fatal]
  - Asthenia [Not Recovered/Not Resolved]
  - Vomiting [Not Recovered/Not Resolved]
  - Unevaluable event [Not Recovered/Not Resolved]
  - Hypoxia [Fatal]

NARRATIVE: CASE EVENT DATE: 20231202
